FAERS Safety Report 5431174-1 (Version None)
Quarter: 2007Q3

REPORT INFORMATION
  Report Type: 
  Country: None (occurrence: None)
  Receive Date: 20070830
  Receipt Date: 20070315
  Transmission Date: 20080115
  Serious: No
  Sender: FDA-Public Use
  Company Number: A0643368A

PATIENT
  Sex: Male

DRUGS (4)
  1. WELLBUTRIN XL [Suspect]
     Indication: DRUG USE FOR UNKNOWN INDICATION
     Dosage: 300MG PER DAY
     Route: 048
     Dates: start: 20061001
  2. ASPIRIN [Concomitant]
  3. METFORMIN HCL [Concomitant]
  4. LOVASTATIN [Concomitant]

REACTIONS (1)
  - TINNITUS [None]
